FAERS Safety Report 4883121-9 (Version None)
Quarter: 2006Q1

REPORT INFORMATION
  Report Type: 
  Country: None (occurrence: None)
  Receive Date: 20060117
  Receipt Date: 20060117
  Transmission Date: 20060701
  Serious: Yes (Life-Threatening, Hospitalization, Other)
  Sender: FDA-Public Use
  Company Number: None

PATIENT
  Age: 58 Year
  Sex: Male
  Weight: 113 kg

DRUGS (1)
  1. ENBREL [Suspect]
     Indication: PSORIASIS
     Dosage: 50 MG   TWICE A WEEK   SQ   (5 DOSES)
     Route: 058
     Dates: start: 20050711, end: 20050731

REACTIONS (7)
  - BLOOD CULTURE POSITIVE [None]
  - HYPOAESTHESIA [None]
  - MYELITIS TRANSVERSE [None]
  - PARALYSIS [None]
  - PYREXIA [None]
  - SENSORY LOSS [None]
  - STAPHYLOCOCCAL INFECTION [None]
